FAERS Safety Report 8794285 (Version 1)
Quarter: 2012Q4

REPORT INFORMATION
  Report Type: 
  Country: IN (occurrence: IN)
  Receive Date: 20120917
  Receipt Date: 20120917
  Transmission Date: 20130627
  Serious: Yes (Hospitalization)
  Sender: FDA-Public Use
  Company Number: IN-MYLANLABS-2012S1018657

PATIENT
  Age: 4 Year

DRUGS (1)
  1. PHENYTOIN [Suspect]
     Indication: ACCIDENTAL OVERDOSE
     Route: 048

REACTIONS (6)
  - Depressed level of consciousness [Recovered/Resolved]
  - Head titubation [Recovered/Resolved]
  - Dyskinesia [Recovered/Resolved]
  - Nystagmus [Recovered/Resolved]
  - Accidental exposure to product by child [Recovered/Resolved]
  - Toxicity to various agents [Recovered/Resolved]
